FAERS Safety Report 9069780 (Version 2)
Quarter: 2013Q1

REPORT INFORMATION
  Report Type: Report from Study
  Country: DE (occurrence: DE)
  Receive Date: 20130215
  Receipt Date: 20130304
  Transmission Date: 20140127
  Serious: Yes (Hospitalization)
  Sender: FDA-Public Use
  Company Number: DE-CELGENEUS-062-21880-13020742

PATIENT
  Age: 63 Year
  Sex: Male
  Weight: 85 kg

DRUGS (4)
  1. REVLIMID [Suspect]
     Indication: PLASMA CELL MYELOMA
     Route: 048
  2. ADRIAMYCIN [Suspect]
     Indication: PLASMA CELL MYELOMA
     Route: 040
     Dates: start: 20121030
  3. DEXAMETHASONE [Suspect]
     Indication: PLASMA CELL MYELOMA
     Route: 048
     Dates: start: 20121030
  4. PEGFILGRASTIM [Suspect]
     Indication: PLASMA CELL MYELOMA
     Route: 058

REACTIONS (1)
  - Atrial flutter [Not Recovered/Not Resolved]
